FAERS Safety Report 20241052 (Version 1)
Quarter: 2021Q4

REPORT INFORMATION
  Report Type: Spontaneous
  Country: US (occurrence: US)
  Receive Date: 20211228
  Receipt Date: 20211228
  Transmission Date: 20220303
  Serious: No
  Sender: FDA-Public Use
  Company Number: US-PFIZER INC-2019218951

PATIENT
  Age: 61 Year
  Sex: Female

DRUGS (7)
  1. IBRANCE [Suspect]
     Active Substance: PALBOCICLIB
     Indication: Rheumatoid arthritis
     Dosage: 100 MG, UNK
  2. IBRANCE [Suspect]
     Active Substance: PALBOCICLIB
     Indication: Hypertension
     Dosage: 100 MG
     Dates: start: 2012
  3. IBRANCE [Suspect]
     Active Substance: PALBOCICLIB
     Indication: Gastrooesophageal reflux disease
  4. IBRANCE [Suspect]
     Active Substance: PALBOCICLIB
     Indication: Deep vein thrombosis
  5. IBRANCE [Suspect]
     Active Substance: PALBOCICLIB
     Indication: Fibromyalgia
  6. IBRANCE [Suspect]
     Active Substance: PALBOCICLIB
     Indication: Osteoporosis
  7. IBRANCE [Suspect]
     Active Substance: PALBOCICLIB
     Indication: Breast cancer female

REACTIONS (3)
  - Cough [Unknown]
  - Cough [Unknown]
  - Abdominal pain [Unknown]
